FAERS Safety Report 5592027-1 (Version None)
Quarter: 2008Q1

REPORT INFORMATION
  Report Type: 
  Country: None (occurrence: None)
  Receive Date: 20080115
  Receipt Date: 20070124
  Transmission Date: 20080703
  Serious: No
  Sender: FDA-Public Use
  Company Number: US-ABBOTT-07P-163-0406415-00

PATIENT
  Sex: Female
  Weight: 92.616 kg

DRUGS (1)
  1. ADVICOR [Suspect]
     Indication: HIGH DENSITY LIPOPROTEIN DECREASED
     Route: 048
     Dates: start: 20070109

REACTIONS (3)
  - DIZZINESS [None]
  - HYPERHIDROSIS [None]
  - PARAESTHESIA [None]
